FAERS Safety Report 12195657 (Version 1)
Quarter: 2016Q1

REPORT INFORMATION
  Report Type: Spontaneous
  Country: IT (occurrence: IT)
  Receive Date: 20160321
  Receipt Date: 20160321
  Transmission Date: 20160526
  Serious: Yes (Life-Threatening)
  Sender: FDA-Public Use
  Company Number: IT-FRESENIUS KABI-FK201601428

PATIENT
  Age: 16 Year
  Sex: Male
  Weight: 68 kg

DRUGS (15)
  1. DEURSIL [Concomitant]
     Active Substance: URSODIOL
     Route: 048
  2. BACTRIM [Concomitant]
     Active Substance: SULFAMETHOXAZOLE\TRIMETHOPRIM
     Route: 048
  3. RANITIDINE [Concomitant]
     Active Substance: RANITIDINE\RANITIDINE HYDROCHLORIDE
     Route: 042
  4. ALOXI [Concomitant]
     Active Substance: PALONOSETRON HYDROCHLORIDE
  5. CYTARABINE (MANUFACTURER UNKNOWN) [Suspect]
     Active Substance: CYTARABINE
     Indication: BONE MARROW TRANSPLANT
     Route: 042
     Dates: start: 20151023, end: 20151026
  6. CIPROXIN [Concomitant]
     Active Substance: CIPROFLOXACIN
     Route: 048
  7. LASIX [Concomitant]
     Active Substance: FUROSEMIDE
     Route: 042
  8. MYCOSTATIN [Concomitant]
     Active Substance: NYSTATIN
     Route: 048
  9. EMEND [Concomitant]
     Active Substance: APREPITANT
  10. ACICLOVIR [Concomitant]
     Active Substance: ACYCLOVIR
     Route: 048
  11. ETOPOSIDE. [Suspect]
     Active Substance: ETOPOSIDE
     Indication: BONE MARROW TRANSPLANT
     Route: 042
     Dates: start: 20151023, end: 20151026
  12. MUPHORAN [Suspect]
     Active Substance: FOTEMUSTINE
     Indication: BONE MARROW TRANSPLANT
     Route: 042
     Dates: start: 20151021, end: 20151022
  13. HEPARIN [Concomitant]
     Active Substance: HEPARIN SODIUM
  14. FLUCONAZOLE. [Concomitant]
     Active Substance: FLUCONAZOLE
     Route: 048
  15. ALLOPURINOL. [Concomitant]
     Active Substance: ALLOPURINOL
     Route: 048

REACTIONS (2)
  - Septic shock [Recovered/Resolved]
  - Pyrexia [Recovered/Resolved]

NARRATIVE: CASE EVENT DATE: 20151104
